FAERS Safety Report 4593852-6 (Version None)
Quarter: 2005Q1

REPORT INFORMATION
  Report Type: 
  Country: None (occurrence: None)
  Receive Date: 20050301
  Receipt Date: 20050202
  Transmission Date: 20050727
  Serious: Yes (Other)
  Sender: FDA-Public Use
  Company Number: 200510886US

PATIENT
  Sex: Female

DRUGS (8)
  1. LANTUS [Suspect]
     Indication: DIABETES MELLITUS NON-INSULIN-DEPENDENT
     Dosage: DOSE UNIT: UNITS
     Route: 051
     Dates: start: 20040301
  2. ALBUTEROL [Concomitant]
     Indication: ASTHMA
     Dosage: DOSE: UNKNOWN
  3. UNKNOWN DRUG [Concomitant]
     Indication: ASTHMA
     Dosage: DOSE: UNKNOWN
  4. DIURETICS [Concomitant]
     Dosage: DOSE: UNKNOWN
  5. PREDNISONE [Concomitant]
     Dosage: DOSE: UNKNOWN
  6. VOLMAX [Concomitant]
     Dosage: DOSE: UNKNOWN
  7. XOLAIR                                  /AUS/ [Concomitant]
     Indication: ASTHMA
     Dosage: DOSE: UNKNOWN
  8. XOLAIR                                  /AUS/ [Concomitant]
     Indication: CHRONIC OBSTRUCTIVE PULMONARY DISEASE
     Dosage: DOSE: UNKNOWN

REACTIONS (2)
  - CHRONIC OBSTRUCTIVE PULMONARY DISEASE [None]
  - PNEUMONIA [None]
